FAERS Safety Report 9019637 (Version 1)
Quarter: 2013Q1

REPORT INFORMATION
  Report Type: Spontaneous
  Country: HU (occurrence: HU)
  Receive Date: 20130118
  Receipt Date: 20130118
  Transmission Date: 20140127
  Serious: Yes (Death)
  Sender: FDA-Public Use
  Company Number: HU-ROCHE-1180295

PATIENT
  Age: 65 None
  Sex: Male

DRUGS (3)
  1. ACTILYSE [Suspect]
     Indication: ISCHAEMIC STROKE
     Dosage: POWDER AND SOLUTION FOR INJECTION, ONCE
     Route: 042
     Dates: start: 20121221, end: 20121221
  2. COVEREX [Concomitant]
     Route: 048
  3. MILURIT [Concomitant]
     Route: 048

REACTIONS (2)
  - Death [Fatal]
  - Haemorrhage intracranial [Fatal]
